FAERS Safety Report 5773623-5 (Version None)
Quarter: 2008Q2

REPORT INFORMATION
  Report Type: 
  Country: None (occurrence: None)
  Receive Date: 20080616
  Receipt Date: 20080605
  Transmission Date: 20081010
  Serious: Yes (Death, Other)
  Sender: FDA-Public Use
  Company Number: US-BAYER-200811398GPV

PATIENT
  Age: 44 Year
  Sex: Female

DRUGS (1)
  1. GADOLINIUM [Suspect]
     Indication: BILIARY TRACT DISORDER
     Route: 065

REACTIONS (4)
  - COMA [None]
  - ENCEPHALOPATHY [None]
  - MULTI-ORGAN FAILURE [None]
  - SEPSIS [None]
